FAERS Safety Report 9917644 (Version 1)
Quarter: 2014Q1

REPORT INFORMATION
  Report Type: Spontaneous
  Country: US (occurrence: US)
  Receive Date: 20140221
  Receipt Date: 20140221
  Transmission Date: 20141002
  Serious: No
  Sender: FDA-Public Use
  Company Number: US-ENDO PHARMACEUTICALS INC.-PREV20130003

PATIENT
  Age: 31 Year
  Sex: Female

DRUGS (1)
  1. PREVIFEM [Suspect]
     Indication: CONTRACEPTION
     Dosage: UNKNOWN
     Route: 048
     Dates: start: 201301

REACTIONS (1)
  - Headache [Unknown]
